FAERS Safety Report 22003496 (Version 2)
Quarter: 2023Q2

REPORT INFORMATION
  Report Type: Report from Study
  Country: US (occurrence: US)
  Receive Date: 20230217
  Receipt Date: 20230605
  Transmission Date: 20230722
  Serious: No
  Sender: FDA-Public Use
  Company Number: US-002147023-NVSC2023US036534

PATIENT
  Sex: Male

DRUGS (1)
  1. TASIGNA [Suspect]
     Active Substance: NILOTINIB
     Indication: Product used for unknown indication
     Dosage: UNK
     Route: 048

REACTIONS (10)
  - Rhinorrhoea [Unknown]
  - Sneezing [Unknown]
  - Constipation [Unknown]
  - Dry skin [Unknown]
  - Oropharyngeal pain [Unknown]
  - Pruritus [Unknown]
  - Erythema [Unknown]
  - Asthenia [Unknown]
  - Adverse drug reaction [Unknown]
  - Oedema peripheral [Unknown]
